FAERS Safety Report 6103684-5 (Version None)
Quarter: 2009Q1

REPORT INFORMATION
  Report Type: 
  Country: None (occurrence: None)
  Receive Date: 20090305
  Receipt Date: 20090223
  Transmission Date: 20090719
  Serious: Yes (Other)
  Sender: FDA-Public Use
  Company Number: US-AVENTIS-200911505US

PATIENT
  Sex: Male
  Weight: 128.64 kg

DRUGS (4)
  1. LOVENOX [Suspect]
     Dosage: DOSE: UNK
     Dates: start: 20080611, end: 20080618
  2. PLAVIX [Concomitant]
     Dosage: DOSE: UNK
  3. NEXIUM [Concomitant]
     Dosage: DOSE: UNK
  4. VYTORIN [Concomitant]
     Dosage: DOSE: UNK

REACTIONS (5)
  - BLOOD CREATININE INCREASED [None]
  - GLOMERULAR FILTRATION RATE DECREASED [None]
  - NEPHROTIC SYNDROME [None]
  - OEDEMA [None]
  - RENAL FAILURE [None]
